FAERS Safety Report 8397689 (Version 3)
Quarter: 2012Q4

REPORT INFORMATION
  Report Type: 
  Country: US (occurrence: US)
  Receive Date: 20120209
  Receipt Date: 20121121
  Transmission Date: 20130627
  Serious: Yes (Other)
  Sender: FDA-Public Use
  Company Number: US-ROCHE-1037325

PATIENT
  Sex: Female
  Weight: 72.64 kg

DRUGS (8)
  1. ACCUTANE [Suspect]
     Indication: ACNE
     Route: 048
     Dates: start: 19971211, end: 1998
  2. SUMYCIN [Concomitant]
  3. CEPHALEXIN [Concomitant]
  4. METROGEL [Concomitant]
  5. PHENTERMINE [Concomitant]
  6. ACETAMINOPHEN [Concomitant]
  7. PROCHLORPERAZINE [Concomitant]
  8. MEPERIDINE [Concomitant]

REACTIONS (5)
  - Proctitis [Unknown]
  - Irritable bowel syndrome [Unknown]
  - Inflammatory bowel disease [Unknown]
  - Depression [Unknown]
  - Injury [Unknown]
